FAERS Safety Report 12952141 (Version 1)
Quarter: 2016Q4

REPORT INFORMATION
  Report Type: Spontaneous
  Country: US (occurrence: US)
  Receive Date: 20161117
  Receipt Date: 20161117
  Transmission Date: 20170207
  Serious: Yes (Other)
  Sender: FDA-Public Use
  Company Number: US-NOVOPROD-492427

PATIENT
  Age: 27 Year
  Sex: Male
  Weight: 145.13 kg

DRUGS (10)
  1. TOUJEO [Suspect]
     Active Substance: INSULIN GLARGINE
     Indication: TYPE 2 DIABETES MELLITUS
     Dosage: 15 U, QD AT NIGHT
     Dates: start: 20160323, end: 201604
  2. TOUJEO [Suspect]
     Active Substance: INSULIN GLARGINE
     Dosage: 31 U, QD AT NIGHT
     Dates: start: 201604, end: 20160428
  3. GLIPIZIDE. [Concomitant]
     Active Substance: GLIPIZIDE
     Indication: TYPE 2 DIABETES MELLITUS
     Dosage: UNK
     Dates: start: 2008
  4. NOVOLOG [Suspect]
     Active Substance: INSULIN ASPART
     Dosage: MISSED DOSES
     Route: 058
     Dates: start: 20160429, end: 20160429
  5. NOVOLOG [Suspect]
     Active Substance: INSULIN ASPART
     Dosage: 14 U, TID WITH MEALS
     Route: 058
     Dates: start: 20160428, end: 20160428
  6. NOVOLOG [Suspect]
     Active Substance: INSULIN ASPART
     Indication: TYPE 2 DIABETES MELLITUS
     Dosage: 8 U, TID WITH MEALS
     Route: 058
     Dates: start: 20160427, end: 20160427
  7. TOUJEO [Suspect]
     Active Substance: INSULIN GLARGINE
     Dosage: MISSED DOSE
     Route: 058
     Dates: start: 20160429, end: 20160429
  8. TOUJEO [Suspect]
     Active Substance: INSULIN GLARGINE
     Dosage: 40 U, QD AT NIGHT
     Dates: start: 20160430
  9. NOVOLOG [Suspect]
     Active Substance: INSULIN ASPART
     Dosage: SLIDING SCALE
     Route: 058
     Dates: start: 20160430
  10. RIAMET [Concomitant]
     Active Substance: ARTEMETHER\LUMEFANTRINE
     Indication: PRODUCT USED FOR UNKNOWN INDICATION
     Dosage: UNK
     Dates: start: 2008

REACTIONS (2)
  - Drug dose omission [Recovered/Resolved]
  - Blood glucose increased [Recovered/Resolved]

NARRATIVE: CASE EVENT DATE: 20160429
